FAERS Safety Report 7904854-3 (Version None)
Quarter: 2011Q4

REPORT INFORMATION
  Report Type: 
  Country: None (occurrence: None)
  Receive Date: 20111109
  Receipt Date: 20111027
  Transmission Date: 20120403
  Serious: Yes (Hospitalization, Other)
  Sender: FDA-Public Use
  Company Number: PHHY2011DE83896

PATIENT
  Sex: Male

DRUGS (11)
  1. GABAPENTIN [Concomitant]
  2. TORSEMIDE [Concomitant]
     Dosage: 1 DF, QD
  3. PROVASTATINE [Concomitant]
     Dosage: 1 DF, QD
  4. RASILEZ HCT [Suspect]
     Indication: HYPERTENSION
     Dosage: 1 DF, QD
     Route: 048
     Dates: start: 20110607, end: 20110707
  5. CALCIUM OSTEO [Concomitant]
     Dosage: 1 DF, QD
  6. CIBACEN [Concomitant]
     Dosage: 1 DF, QD
  7. ACTONEL [Concomitant]
     Dosage: 1 DF, QD
  8. METFORMIN HCL [Concomitant]
     Dosage: 1 DF, BID
  9. SPIRONOLACTONE [Concomitant]
     Dosage: 1 DF, QD
  10. CONCOR [Concomitant]
     Dosage: 1 DF, QD
  11. LANTUS [Concomitant]
     Route: 058

REACTIONS (2)
  - GINGIVAL ABSCESS [None]
  - GINGIVITIS [None]
